FAERS Safety Report 9033521 (Version 6)
Quarter: 2015Q2

REPORT INFORMATION
  Report Type: Spontaneous
  Country: US (occurrence: US)
  Receive Date: 20130128
  Receipt Date: 20150618
  Transmission Date: 20150821
  Serious: Yes (Hospitalization, Disabling, Other)
  Sender: FDA-Public Use
  Company Number: US-009507513-1205USA00015

PATIENT
  Sex: Female
  Weight: 46.26 kg

DRUGS (7)
  1. CALCIUM (UNSPECIFIED) [Concomitant]
     Active Substance: CALCIUM
     Indication: OSTEOPOROSIS
     Dosage: UNK UNK, BID
  2. ALENDRONATE SODIUM. [Suspect]
     Active Substance: ALENDRONATE SODIUM
     Indication: OSTEOPOROSIS
     Dosage: 70 MG, QW
     Route: 048
     Dates: end: 20111007
  3. FOSAMAX [Suspect]
     Active Substance: ALENDRONATE SODIUM
     Indication: OSTEOPOROSIS PROPHYLAXIS
     Dosage: 70 MG, QW
     Route: 048
  4. FOSAMAX [Suspect]
     Active Substance: ALENDRONATE SODIUM
     Indication: OSTEOPOROSIS
     Dosage: ONE DOSE DAILY, QD
     Route: 048
     Dates: end: 19990727
  5. FOSAMAX [Suspect]
     Active Substance: ALENDRONATE SODIUM
     Indication: OSTEOPOROSIS PROPHYLAXIS
  6. FOSAMAX [Suspect]
     Active Substance: ALENDRONATE SODIUM
     Indication: OSTEOPOROSIS
     Route: 048
  7. VITAMIN D [Concomitant]
     Active Substance: CHOLECALCIFEROL
     Indication: OSTEOPOROSIS
     Dosage: UNK UNK, BID

REACTIONS (24)
  - Femur fracture [Not Recovered/Not Resolved]
  - Catheterisation cardiac [Unknown]
  - Intramedullary rod insertion [Unknown]
  - Escherichia urinary tract infection [Unknown]
  - Large intestine polyp [Unknown]
  - Osteopenia [Unknown]
  - Hypertension [Unknown]
  - Impaired healing [Unknown]
  - Anaemia postoperative [Recovered/Resolved]
  - Large intestine benign neoplasm [Unknown]
  - Dizziness [Recovered/Resolved]
  - Heart rate irregular [Unknown]
  - Pneumonia [Unknown]
  - Large intestinal polypectomy [Unknown]
  - Low turnover osteopathy [Not Recovered/Not Resolved]
  - Cataract operation [Unknown]
  - Oedema peripheral [Unknown]
  - Colectomy [Unknown]
  - Labile blood pressure [Unknown]
  - Supraventricular extrasystoles [Unknown]
  - Stress [Unknown]
  - Bursitis [Unknown]
  - Cerumen impaction [Unknown]
  - Carotid bruit [Unknown]

NARRATIVE: CASE EVENT DATE: 20020325
